FAERS Safety Report 19315709 (Version 2)
Quarter: 2022Q1

REPORT INFORMATION
  Report Type: Spontaneous
  Country: US (occurrence: US)
  Receive Date: 20210527
  Receipt Date: 20220223
  Transmission Date: 20220423
  Serious: No
  Sender: FDA-Public Use
  Company Number: US-ELI_LILLY_AND_COMPANY-US202105011853

PATIENT
  Sex: Female

DRUGS (3)
  1. ADCIRCA [Suspect]
     Active Substance: TADALAFIL
     Indication: Cor pulmonale
     Dosage: 40 MG, DAILY
     Route: 048
     Dates: start: 20171207
  2. ADCIRCA [Suspect]
     Active Substance: TADALAFIL
     Indication: Raynaud^s phenomenon
     Dosage: 40 MG, DAILY
     Route: 048
     Dates: start: 201902
  3. ADCIRCA [Suspect]
     Active Substance: TADALAFIL
     Indication: Pulmonary arterial hypertension

REACTIONS (1)
  - Amnesia [Unknown]
